FAERS Safety Report 23655902 (Version 2)
Quarter: 2024Q2

REPORT INFORMATION
  Report Type: Spontaneous
  Country: US (occurrence: US)
  Receive Date: 20240321
  Receipt Date: 20240404
  Transmission Date: 20240716
  Serious: No
  Sender: FDA-Public Use
  Company Number: US-JNJFOC-20240346568

PATIENT
  Age: 50 Year
  Sex: Female
  Weight: 71.732 kg

DRUGS (2)
  1. STELARA [Suspect]
     Active Substance: USTEKINUMAB
     Indication: Psoriasis
     Route: 058
  2. STELARA [Suspect]
     Active Substance: USTEKINUMAB

REACTIONS (3)
  - Product dose omission issue [Unknown]
  - Accidental exposure to product [Unknown]
  - Device malfunction [Unknown]

NARRATIVE: CASE EVENT DATE: 20240315
